FAERS Safety Report 17033795 (Version 2)
Quarter: 2020Q4

REPORT INFORMATION
  Report Type: Spontaneous
  Country: CH (occurrence: CH)
  Receive Date: 20191114
  Receipt Date: 20201231
  Transmission Date: 20210113
  Serious: Yes (Other)
  Sender: FDA-Public Use
  Company Number: CH-009507513-1911CHE004884

PATIENT
  Age: 46 Year
  Sex: Female

DRUGS (3)
  1. CYCLACUR (ESTRADIOL VALERATE (+) NORGESTREL) [Suspect]
     Active Substance: ESTRADIOL VALERATE\NORGESTREL
     Dosage: UNK
     Dates: start: 2017, end: 2020
  2. PLAQUENIL [Concomitant]
     Active Substance: HYDROXYCHLOROQUINE SULFATE
     Dosage: UNK
     Dates: start: 2019, end: 20200519
  3. INEGY [Suspect]
     Active Substance: EZETIMIBE\SIMVASTATIN
     Dosage: UNK
     Dates: start: 2013

REACTIONS (1)
  - Systemic lupus erythematosus [Not Recovered/Not Resolved]

NARRATIVE: CASE EVENT DATE: 201810
